FAERS Safety Report 8509235-X (Version None)
Quarter: 2012Q3

REPORT INFORMATION
  Report Type: 
  Country: None (occurrence: None)
  Receive Date: 20120713
  Receipt Date: 20120710
  Transmission Date: 20120928
  Serious: Yes (Other)
  Sender: FDA-Public Use
  Company Number: US-PFIZER INC-2012045986

PATIENT
  Sex: Female
  Weight: 68.027 kg

DRUGS (3)
  1. LYRICA [Suspect]
     Indication: AMYOTROPHY
     Dosage: TWO 50MG ORAL CAPSULES IN MORNING AND ONE 75MG ORAL CAPSULE IN NIGHT
     Route: 048
     Dates: start: 20111201
  2. NEURONTIN [Suspect]
     Indication: NEURALGIA
     Dosage: 600 MG, 3X/DAY
     Route: 048
     Dates: start: 20090301, end: 20091001
  3. LYRICA [Suspect]
     Dosage: UNK
     Route: 048

REACTIONS (4)
  - AMYOTROPHY [None]
  - PULMONARY HYPERTENSION [None]
  - RED BLOOD CELL COUNT INCREASED [None]
  - DRUG EFFECT DECREASED [None]
